FAERS Safety Report 8984235 (Version 1)
Quarter: 2012Q4

REPORT INFORMATION
  Report Type: 
  Country: US (occurrence: US)
  Receive Date: 20121226
  Receipt Date: 20121226
  Transmission Date: 20130627
  Serious: Yes (Other)
  Sender: FDA-Public Use
  Company Number: US-JNJFOC-20121207702

PATIENT
  Sex: Female

DRUGS (2)
  1. ORTHO CYCLEN [Suspect]
     Indication: CONTRACEPTION
     Dosage: 35 mcg ethinyl estradiol and 250 mcg norgestimate
     Route: 048
  2. ORTHO EVRA [Suspect]
     Indication: CONTRACEPTION
     Dosage: 0.75 mg ethinyl estradiol and 6.0 mg norelgestromin
     Route: 062

REACTIONS (7)
  - Protein S decreased [Unknown]
  - Antithrombin III decreased [Unknown]
  - Fibrin D dimer increased [Unknown]
  - Activated protein C resistance [Unknown]
  - C-reactive protein increased [Unknown]
  - Blood fibrinogen increased [Unknown]
  - Protein total decreased [Unknown]
